FAERS Safety Report 6522812-0 (Version None)
Quarter: 2009Q4

REPORT INFORMATION
  Report Type: 
  Country: None (occurrence: None)
  Receive Date: 20091230
  Receipt Date: 20091217
  Transmission Date: 20100525
  Serious: Yes (Other)
  Sender: FDA-Public Use
  Company Number: US-BAYER-200943729NA

PATIENT
  Sex: Female

DRUGS (7)
  1. MAGNEVIST [Suspect]
     Indication: NUCLEAR MAGNETIC RESONANCE IMAGING
  2. OMNISCAN [Suspect]
     Indication: NUCLEAR MAGNETIC RESONANCE IMAGING
  3. UNSPECIFIED GADOLINIUM BASED CONTRAST AGENTS [Suspect]
     Indication: NUCLEAR MAGNETIC RESONANCE IMAGING
     Dates: start: 20000222, end: 20000222
  4. UNSPECIFIED GADOLINIUM BASED CONTRAST AGENTS [Suspect]
     Dates: start: 20060606, end: 20060606
  5. UNSPECIFIED GADOLINIUM BASED CONTRAST AGENTS [Suspect]
     Dates: start: 20060829, end: 20060829
  6. UNSPECIFIED GADOLINIUM BASED CONTRAST AGENTS [Suspect]
     Dates: start: 20010508, end: 20010508
  7. UNSPECIFIED GADOLINIUM BASED CONTRAST AGENTS [Suspect]
     Dates: start: 20010703, end: 20010703

REACTIONS (4)
  - ABASIA [None]
  - DEFORMITY [None]
  - MOTOR DYSFUNCTION [None]
  - NEPHROGENIC SYSTEMIC FIBROSIS [None]
